FAERS Safety Report 8598603-6 (Version None)
Quarter: 2012Q3

REPORT INFORMATION
  Report Type: 
  Country: None (occurrence: None)
  Receive Date: 20120816
  Receipt Date: 19920216
  Transmission Date: 20120928
  Serious: Yes (Death, Other)
  Sender: FDA-Public Use
  Company Number: US-ROCHE-1098205

PATIENT
  Sex: Male

DRUGS (2)
  1. ACTIVASE [Suspect]
     Indication: ACUTE MYOCARDIAL INFARCTION
  2. ACTIVASE [Suspect]
     Indication: CARDIAC ARREST

REACTIONS (8)
  - VENTRICULAR EXTRASYSTOLES [None]
  - TACHYARRHYTHMIA [None]
  - VENTRICULAR TACHYCARDIA [None]
  - CONVULSION [None]
  - CARDIAC ARREST [None]
  - BRADYARRHYTHMIA [None]
  - RESPIRATORY ARREST [None]
  - ELECTROCARDIOGRAM P WAVE ABNORMAL [None]
